FAERS Safety Report 7859664-2 (Version None)
Quarter: 2011Q4

REPORT INFORMATION
  Report Type: 
  Country: None (occurrence: None)
  Receive Date: 20111026
  Receipt Date: 20111026
  Transmission Date: 20120403
  Serious: Yes (Hospitalization)
  Sender: FDA-Public Use
  Company Number: None

PATIENT
  Age: 57 Year
  Sex: Male
  Weight: 54.8852 kg

DRUGS (2)
  1. FLUOXETINE HCL [Suspect]
     Indication: DEPRESSION
     Dosage: 1 TAB EVERY DAY PO
     Route: 048
     Dates: start: 20110603, end: 20110710
  2. PROMETHAZINE [Suspect]
     Indication: NAUSEA
     Dates: start: 20110603

REACTIONS (2)
  - FALL [None]
  - DIZZINESS [None]
